FAERS Safety Report 15047697 (Version 2)
Quarter: 2018Q3

REPORT INFORMATION
  Report Type: Other
  Country: IT (occurrence: IT)
  Receive Date: 20180621
  Receipt Date: 20180622
  Transmission Date: 20181010
  Serious: Yes (Death, Life-Threatening, Hospitalization)
  Sender: FDA-Public Use
  Company Number: IT-NOSTRUM LABORATORIES, INC.-2049803

PATIENT
  Age: 53 Year
  Sex: Male

DRUGS (1)
  1. DAPSONE. [Suspect]
     Active Substance: DAPSONE
     Indication: LEPROSY
     Route: 048

REACTIONS (6)
  - Drug reaction with eosinophilia and systemic symptoms [Fatal]
  - Anaemia [None]
  - Disseminated intravascular coagulation [Fatal]
  - Multiple organ dysfunction syndrome [None]
  - Thrombocytopenia [Fatal]
  - Hypoxia [Fatal]
